FAERS Safety Report 5281370-1 (Version None)
Quarter: 2007Q1

REPORT INFORMATION
  Report Type: 
  Country: None (occurrence: None)
  Receive Date: 20070322
  Receipt Date: 20070322
  Transmission Date: 20070707
  Serious: Yes (Other)
  Sender: FDA-Public Use
  Company Number: None

PATIENT
  Age: 47 Year
  Sex: Female

DRUGS (1)
  1. SOLU-MEDROL [Suspect]
     Indication: LARYNGOTRACHEITIS
     Dosage: 250MG ONCE IV DRIP
     Route: 041
     Dates: start: 20070301, end: 20070301

REACTIONS (1)
  - RASH MACULAR [None]
